FAERS Safety Report 17683696 (Version 2)
Quarter: 2020Q3

REPORT INFORMATION
  Report Type: Report from Study
  Country: US (occurrence: US)
  Receive Date: 20200420
  Receipt Date: 20200903
  Transmission Date: 20201102
  Serious: Yes (Hospitalization, Other)
  Sender: FDA-Public Use
  Company Number: US-BRISTOL-MYERS SQUIBB COMPANY-BMS-2020-031555

PATIENT
  Sex: Female
  Weight: 90.7 kg

DRUGS (4)
  1. ABATACEPT [Suspect]
     Active Substance: ABATACEPT
     Indication: RHEUMATOID ARTHRITIS
     Dosage: UNKM MONTHLY
     Route: 058
     Dates: start: 201003, end: 201507
  2. ABATACEPT [Suspect]
     Active Substance: ABATACEPT
     Dosage: 125 MILLIGRAM, QWK
     Route: 058
     Dates: start: 20190501
  3. LYRICA [Suspect]
     Active Substance: PREGABALIN
     Indication: HIP ARTHROPLASTY
     Dosage: UNK
     Route: 065
     Dates: start: 2019, end: 2019
  4. CELEBREX [Suspect]
     Active Substance: CELECOXIB
     Indication: HIP ARTHROPLASTY
     Dosage: UNK
     Route: 065
     Dates: start: 2019, end: 2019

REACTIONS (5)
  - Peripheral swelling [Recovering/Resolving]
  - Arthropathy [Unknown]
  - Basal cell carcinoma [Unknown]
  - Carpal tunnel syndrome [Unknown]
  - Precancerous skin lesion [Unknown]
